FAERS Safety Report 5316567-5 (Version None)
Quarter: 2007Q2

REPORT INFORMATION
  Report Type: 
  Country: None (occurrence: None)
  Receive Date: 20070504
  Receipt Date: 20070502
  Transmission Date: 20071010
  Serious: Yes (Hospitalization)
  Sender: FDA-Public Use
  Company Number: DE-AVENTIS-200711161DE

PATIENT
  Age: 67 Year
  Sex: Female
  Weight: 49 kg

DRUGS (2)
  1. DOCETAXEL [Suspect]
     Indication: BREAST CANCER
     Dosage: DOSE: NOT REPORTED
     Route: 042
     Dates: start: 20070413, end: 20070413
  2. GEMCITABINE HCL [Suspect]
     Indication: BREAST CANCER
     Dosage: DOSE: NOT REPORTED
     Route: 042
     Dates: start: 20070413, end: 20070420

REACTIONS (1)
  - VERTIGO [None]
